FAERS Safety Report 23486033 (Version 3)
Quarter: 2024Q2

REPORT INFORMATION
  Report Type: Report from Study
  Country: FR (occurrence: FR)
  Receive Date: 20240206
  Receipt Date: 20240621
  Transmission Date: 20240716
  Serious: Yes (Hospitalization, Other)
  Sender: FDA-Public Use
  Company Number: FR-GLAXOSMITHKLINE-FR2024GSK014540

PATIENT

DRUGS (6)
  1. DOSTARLIMAB [Suspect]
     Active Substance: DOSTARLIMAB
     Indication: Neoplasm
     Dosage: 500 MG, Q3W, 500 MG, 3W ( FOR THE FIRST 6 CYCLES)
     Route: 042
     Dates: start: 20231222, end: 20231222
  2. DOSTARLIMAB [Suspect]
     Active Substance: DOSTARLIMAB
     Indication: Endometrial cancer recurrent
  3. CARBOPLATIN [Suspect]
     Active Substance: CARBOPLATIN
     Indication: Endometrial cancer
     Dosage: UNK
     Route: 042
     Dates: start: 20231222, end: 20231222
  4. PACLITAXEL [Suspect]
     Active Substance: PACLITAXEL
     Indication: Endometrial cancer
     Dosage: UNK
     Route: 042
     Dates: start: 20231222, end: 20231222
  5. PRISTINAMYCIN [Suspect]
     Active Substance: PRISTINAMYCIN
     Indication: Bronchitis
     Dosage: 6 DF, QD (2-2-2 FOR 4 DAYS)
     Route: 048
     Dates: start: 20231226, end: 20231226
  6. ZIEXTENZO [Suspect]
     Active Substance: PEGFILGRASTIM-BMEZ
     Indication: Blood disorder prophylaxis
     Dosage: 1 INJECTION OF 6 MG
     Route: 058
     Dates: start: 20231224, end: 20231224

REACTIONS (1)
  - Drug reaction with eosinophilia and systemic symptoms [Recovering/Resolving]

NARRATIVE: CASE EVENT DATE: 20231230
